FAERS Safety Report 15346316 (Version 1)
Quarter: 2018Q3

REPORT INFORMATION
  Report Type: Spontaneous
  Country: US (occurrence: US)
  Receive Date: 20180828
  Receipt Date: 20180828
  Transmission Date: 20181010
  Serious: Yes (Life-Threatening, Hospitalization)
  Sender: FDA-Public Use
  Company Number: None

PATIENT
  Age: 24 Year
  Sex: Male

DRUGS (1)
  1. KRATOM [Suspect]
     Active Substance: MITRAGYNINE\HERBALS

REACTIONS (4)
  - Staphylococcal infection [None]
  - Hepatic failure [None]
  - Malaise [None]
  - Drug abuse [None]

NARRATIVE: CASE EVENT DATE: 201808
